FAERS Safety Report 6014473-4 (Version None)
Quarter: 2008Q4

REPORT INFORMATION
  Report Type: 
  Country: None (occurrence: None)
  Receive Date: 20081219
  Receipt Date: 20080708
  Transmission Date: 20090506
  Serious: No
  Sender: FDA-Public Use
  Company Number: A0736495A

PATIENT
  Age: 60 Year
  Sex: Male

DRUGS (6)
  1. AVODART [Suspect]
     Indication: BENIGN PROSTATIC HYPERPLASIA
     Dosage: 1CAP PER DAY
     Route: 048
     Dates: start: 20071201, end: 20080501
  2. FLOMAX [Concomitant]
  3. AMITRIPTYLINE HCL [Concomitant]
  4. LEVOTHYROXINE SODIUM [Concomitant]
  5. LISINOPRIL [Concomitant]
  6. HYDROCHLOROTHIAZIDE [Concomitant]

REACTIONS (4)
  - EJACULATION FAILURE [None]
  - ERECTILE DYSFUNCTION [None]
  - ORGASM ABNORMAL [None]
  - SEXUAL DYSFUNCTION [None]
